FAERS Safety Report 5127263-1 (Version None)
Quarter: 2006Q4

REPORT INFORMATION
  Report Type: 
  Country: None (occurrence: None)
  Receive Date: 20061013
  Receipt Date: 20060929
  Transmission Date: 20070319
  Serious: Yes (Death, Other)
  Sender: FDA-Public Use
  Company Number: GB-GILEAD-2006-0010410

PATIENT

DRUGS (2)
  1. DAUNOXOME [Suspect]
  2. DAUNOXOME [Suspect]

REACTIONS (6)
  - CARDIAC FAILURE CONGESTIVE [None]
  - CARDIAC FUNCTION TEST ABNORMAL [None]
  - CARDIOMYOPATHY [None]
  - CARDIOTOXICITY [None]
  - DRUG TOXICITY [None]
  - EJECTION FRACTION DECREASED [None]
